FAERS Safety Report 23397349 (Version 2)
Quarter: 2024Q1

REPORT INFORMATION
  Report Type: Spontaneous
  Country: HR (occurrence: HR)
  Receive Date: 20240112
  Receipt Date: 20240326
  Transmission Date: 20240410
  Serious: Yes (Other)
  Sender: FDA-Public Use
  Company Number: HR-SUN PHARMACEUTICAL INDUSTRIES LTD-2024R1-426837

PATIENT
  Age: 67 Year
  Sex: Male

DRUGS (1)
  1. CIPROFLOXACIN [Suspect]
     Active Substance: CIPROFLOXACIN
     Indication: Antibiotic therapy
     Dosage: UNK
     Route: 065

REACTIONS (1)
  - Inappropriate antidiuretic hormone secretion [Recovered/Resolved]
